FAERS Safety Report 8347352-8 (Version None)
Quarter: 2012Q2

REPORT INFORMATION
  Report Type: 
  Country: None (occurrence: None)
  Receive Date: 20120509
  Receipt Date: 20120507
  Transmission Date: 20120825
  Serious: No
  Sender: FDA-Public Use
  Company Number: US-PFIZER INC-2012111729

PATIENT
  Sex: Male
  Weight: 83.9 kg

DRUGS (8)
  1. LORTAB [Suspect]
     Indication: ARTHRALGIA
  2. COUMADIN [Concomitant]
     Indication: ANTICOAGULANT THERAPY
     Dosage: 2.5 MG, 4X/DAY
  3. LYRICA [Suspect]
     Indication: ARTHRALGIA
  4. LYRICA [Suspect]
     Indication: BACK PAIN
     Dosage: 100 MG, 2X/DAY
     Route: 048
     Dates: start: 20120101
  5. VALIUM [Suspect]
     Indication: ARTHRALGIA
  6. VALIUM [Suspect]
     Indication: BACK PAIN
     Dosage: ONE AND A HALF TABLET OF 10 MG DAILY
     Route: 048
  7. COUMADIN [Concomitant]
     Dosage: 5 MG, 3X/DAY
  8. LORTAB [Suspect]
     Indication: BACK PAIN
     Dosage: 7.5/500 MG, 4X/DAY
     Route: 048
     Dates: start: 20090101

REACTIONS (2)
  - ARTHRALGIA [None]
  - BACK PAIN [None]
